FAERS Safety Report 8790685 (Version 1)
Quarter: 2012Q4

REPORT INFORMATION
  Report Type: Spontaneous
  Country: US (occurrence: None)
  Receive Date: 20120912
  Receipt Date: 20120912
  Transmission Date: 20130627
  Serious: Yes (Hospitalization)
  Sender: FDA-Public Use
  Company Number: None

PATIENT
  Age: 61 Year
  Sex: Male
  Weight: 84.2 kg

DRUGS (1)
  1. SULINDAC [Suspect]
     Indication: PAIN
     Route: 048
     Dates: start: 20110913, end: 20111025

REACTIONS (6)
  - Dizziness [None]
  - Presyncope [None]
  - Faeces discoloured [None]
  - Upper gastrointestinal haemorrhage [None]
  - Duodenal ulcer [None]
  - Haemoglobin decreased [None]
